FAERS Safety Report 5184026-9 (Version None)
Quarter: 2006Q4

REPORT INFORMATION
  Report Type: 
  Country: None (occurrence: None)
  Receive Date: 20061212
  Receipt Date: 20061128
  Transmission Date: 20070319
  Serious: Yes (Other)
  Sender: FDA-Public Use
  Company Number: US-2006-022472

PATIENT
  Age: 50 Year
  Sex: Male
  Weight: 98.2 kg

DRUGS (15)
  1. LEUKINE [Suspect]
     Indication: CROHN'S DISEASE
     Dosage: 4 UG/KG, 1X/DAY, SUBCUTANEOUS
     Route: 058
     Dates: start: 20050428, end: 20060717
  2. SIMETHICONE (SIMETICONE) [Concomitant]
  3. LIPITOR [Concomitant]
  4. BENADRYL ^WARNER-LAMBERT^ /USA/ (DIPHENHYDRAMINE HYDROCHLORIDE) [Concomitant]
  5. DONNATAL (HYOSCINE HYDROBROMIDE, HYOSCYAMINE SULFATE, PHENOBARBITAL, A [Concomitant]
  6. IMODIUM [Concomitant]
  7. CODEINE SUL TAB [Concomitant]
  8. ESOMEPRAZOLE (ESOMEPRAZOLE) [Concomitant]
  9. FINASTERIDE [Concomitant]
  10. MULTIVITAMIN ^LAPPE^ (VITAMINS NOS) [Concomitant]
  11. TYLENOL W/ CODEINE NO. 3 [Concomitant]
  12. VICODIN [Concomitant]
  13. ALPRAZOLAM [Concomitant]
  14. OMNICEF [Concomitant]
  15. VSL3 PROBIOTIC [Concomitant]

REACTIONS (17)
  - BAND NEUTROPHIL COUNT INCREASED [None]
  - BASOPHIL COUNT INCREASED [None]
  - BLOOD GLUCOSE INCREASED [None]
  - BLOOD UREA INCREASED [None]
  - EOSINOPHIL COUNT INCREASED [None]
  - LYMPHOCYTE COUNT DECREASED [None]
  - LYMPHOCYTE COUNT INCREASED [None]
  - MONOCYTE COUNT INCREASED [None]
  - NASOPHARYNGITIS [None]
  - NEUTROPHIL COUNT INCREASED [None]
  - NEUTROPHIL TOXIC GRANULATION PRESENT [None]
  - NO THERAPEUTIC RESPONSE [None]
  - PLATELET COUNT INCREASED [None]
  - POLYCHROMASIA [None]
  - TONSILLITIS [None]
  - WARM TYPE HAEMOLYTIC ANAEMIA [None]
  - WHITE BLOOD CELL COUNT INCREASED [None]
